FAERS Safety Report 9623992 (Version 1)
Quarter: 2013Q4

REPORT INFORMATION
  Report Type: Spontaneous
  Country: US (occurrence: US)
  Receive Date: 20131015
  Receipt Date: 20131015
  Transmission Date: 20140711
  Serious: Yes (Hospitalization)
  Sender: FDA-Public Use
  Company Number: US-B.I. PHARMACEUTICALS,INC./RIDGEFIELD-2013-BI-31982BP

PATIENT
  Age: 82 Year
  Sex: Female
  Weight: 92 kg

DRUGS (11)
  1. COMBIVENT [Suspect]
     Indication: CHRONIC OBSTRUCTIVE PULMONARY DISEASE
     Dosage: 8 PUF
     Route: 055
     Dates: start: 201307
  2. VITAMIN D3 [Concomitant]
     Indication: SUPPLEMENTATION THERAPY
     Dosage: 1000 U
     Route: 048
     Dates: start: 201301
  3. ALLOPURINOL [Concomitant]
     Indication: GOUT
     Dosage: 200 MG
     Route: 048
     Dates: start: 201303
  4. ASPIRIN [Concomitant]
     Indication: CARDIAC DISORDER
     Dosage: 81 MG
     Route: 048
     Dates: start: 2000
  5. CLOPIDOGREL [Concomitant]
     Indication: ANTIPLATELET THERAPY
     Dosage: 75 MG
     Route: 048
     Dates: start: 2012
  6. FISH OIL [Concomitant]
     Indication: CARDIAC DISORDER
     Dosage: 1 ANZ
     Route: 048
     Dates: start: 2010
  7. FUROSEMIDE [Concomitant]
     Indication: FLUID RETENTION
     Dosage: 40 MG
     Route: 048
     Dates: start: 201309
  8. LOVASTATIN [Concomitant]
     Dosage: 80 MG
     Route: 048
     Dates: start: 2009
  9. LEVOTHYROXINE [Concomitant]
     Indication: HYPOTHYROIDISM
     Dosage: 62.5 MCG
     Route: 048
     Dates: start: 2008
  10. TOPROL [Concomitant]
     Dosage: 50 MG
     Route: 048
     Dates: start: 2008
  11. MULTIVITAMIN [Concomitant]
     Indication: SUPPLEMENTATION THERAPY
     Dosage: 1 ANZ
     Route: 048

REACTIONS (4)
  - Myocardial infarction [Recovered/Resolved]
  - Renal failure [Not Recovered/Not Resolved]
  - Respiratory failure [Recovered/Resolved]
  - Overdose [Unknown]
